FAERS Safety Report 7265308-3 (Version None)
Quarter: 2011Q1

REPORT INFORMATION
  Report Type: 
  Country: None (occurrence: None)
  Receive Date: 20110131
  Receipt Date: 20110120
  Transmission Date: 20110831
  Serious: Yes (Hospitalization)
  Sender: FDA-Public Use
  Company Number: US-ASTRAZENECA-2011SE03654

PATIENT
  Age: 69 Year
  Sex: Female

DRUGS (1)
  1. TOPROL-XL [Suspect]
     Route: 048

REACTIONS (4)
  - LUNG NEOPLASM MALIGNANT [None]
  - GASTRIC OPERATION [None]
  - MULTIPLE FRACTURES [None]
  - SURGERY [None]
